FAERS Safety Report 4749083-X (Version None)
Quarter: 2005Q3

REPORT INFORMATION
  Report Type: 
  Country: None (occurrence: None)
  Receive Date: 20050819
  Receipt Date: 20050729
  Transmission Date: 20060218
  Serious: Yes (Other)
  Sender: FDA-Public Use
  Company Number: RO-ROCHE-412328

PATIENT
  Age: 47 Year
  Sex: Female
  Weight: 54 kg

DRUGS (4)
  1. PEGASYS [Suspect]
     Dosage: FORMULATION: PRE-FILLED SYRINGE.
     Route: 058
     Dates: start: 20050223
  2. PEGASYS [Suspect]
     Route: 058
  3. COPEGUS [Suspect]
     Route: 048
     Dates: start: 20050223, end: 20050615
  4. COPEGUS [Suspect]
     Route: 048
     Dates: start: 20050615

REACTIONS (2)
  - ANAEMIA [None]
  - AUTOIMMUNE THYROIDITIS [None]
